FAERS Safety Report 4470886-3 (Version None)
Quarter: 2004Q4

REPORT INFORMATION
  Report Type: 
  Country: None (occurrence: None)
  Receive Date: 20041011
  Receipt Date: 20040910
  Transmission Date: 20050328
  Serious: Yes (Life-Threatening, Hospitalization)
  Sender: FDA-Public Use
  Company Number: PHRM2004FR02757

PATIENT
  Age: 63 Year
  Sex: Male
  Weight: 103 kg

DRUGS (3)
  1. FRACTAL [Suspect]
     Indication: HYPERCHOLESTEROLAEMIA
     Dosage: 40 MG, QD
     Route: 048
     Dates: start: 20040402, end: 20040602
  2. BISOPROLOL FUMARATE [Concomitant]
     Dosage: 5 MG, BID
     Route: 048
     Dates: start: 20030123
  3. MICARDIS [Concomitant]
     Dosage: 40 MG, QD
     Route: 048
     Dates: start: 20030123

REACTIONS (6)
  - ANAEMIA MACROCYTIC [None]
  - ANISOCYTOSIS [None]
  - FATIGUE [None]
  - HAEMATOCRIT DECREASED [None]
  - HAEMOGLOBIN DECREASED [None]
  - JAUNDICE [None]
